FAERS Safety Report 24531531 (Version 1)
Quarter: 2024Q4

REPORT INFORMATION
  Report Type: Spontaneous
  Country: MX (occurrence: MX)
  Receive Date: 20241022
  Receipt Date: 20241022
  Transmission Date: 20250115
  Serious: No
  Sender: ROCHE
  Company Number: MX-ROCHE-3492099

PATIENT
  Age: 4 Month
  Sex: Female
  Weight: 12.0 kg

DRUGS (2)
  1. PULMOZYME [Suspect]
     Active Substance: DORNASE ALFA
     Indication: Cystic fibrosis
     Dosage: 1 AMPOULE. THE DOSE WAS NOT REPORTED
     Route: 055
     Dates: start: 202108
  2. ALBUTEROL [Concomitant]
     Active Substance: ALBUTEROL
     Dosage: DOSE WAS NOT REPORTED

REACTIONS (2)
  - Off label use [Unknown]
  - No adverse event [Unknown]

NARRATIVE: CASE EVENT DATE: 20210801
